FAERS Safety Report 6883927-0 (Version None)
Quarter: 2010Q3

REPORT INFORMATION
  Report Type: 
  Country: None (occurrence: None)
  Receive Date: 20100729
  Receipt Date: 20100728
  Transmission Date: 20110219
  Serious: Yes (Death)
  Sender: FDA-Public Use
  Company Number: A0871497A

PATIENT
  Sex: Female
  Weight: 66.2 kg

DRUGS (1)
  1. OFATUMUMAB [Suspect]
     Route: 042
     Dates: start: 20100708

REACTIONS (1)
  - PNEUMONIA [None]
